FAERS Safety Report 7230512-7 (Version None)
Quarter: 2011Q1

REPORT INFORMATION
  Report Type: 
  Country: None (occurrence: None)
  Receive Date: 20110118
  Receipt Date: 20110105
  Transmission Date: 20110831
  Serious: Yes (Other)
  Sender: FDA-Public Use
  Company Number: PHHY2011BR02439

PATIENT
  Sex: Female

DRUGS (1)
  1. ACLASTA [Suspect]
     Dosage: 5 MG, UNK
     Dates: start: 20110104

REACTIONS (13)
  - HYPOPHAGIA [None]
  - PAIN [None]
  - MALAISE [None]
  - VEIN DISORDER [None]
  - CHEST PAIN [None]
  - INSOMNIA [None]
  - PYREXIA [None]
  - PARAESTHESIA [None]
  - HEADACHE [None]
  - MUSCULOSKELETAL PAIN [None]
  - EAR PAIN [None]
  - NECK PAIN [None]
  - PAIN IN EXTREMITY [None]
